FAERS Safety Report 10548054 (Version 6)
Quarter: 2015Q2

REPORT INFORMATION
  Report Type: Report from Study
  Country: DE (occurrence: DE)
  Receive Date: 20141028
  Receipt Date: 20150511
  Transmission Date: 20150821
  Serious: Yes (Death, Hospitalization)
  Sender: FDA-Public Use
  Company Number: PHHY2014DE139517

PATIENT
  Sex: Male
  Weight: 95 kg

DRUGS (6)
  1. ICL670A [Suspect]
     Active Substance: DEFERASIROX
     Dosage: 0 MG
     Route: 048
     Dates: start: 20131210, end: 20131218
  2. ICL670A [Suspect]
     Active Substance: DEFERASIROX
     Dosage: 0 MG
     Route: 048
     Dates: start: 20131117, end: 20131121
  3. ICL670A [Suspect]
     Active Substance: DEFERASIROX
     Dosage: 500 MG, QD
     Route: 048
     Dates: start: 20131122, end: 20131209
  4. ICL670A [Suspect]
     Active Substance: DEFERASIROX
     Indication: MYELOPROLIFERATIVE DISORDER
     Dosage: 500 MG, QD (1X500 MG)
     Route: 048
     Dates: start: 20130724, end: 20131116
  5. ICL670A [Suspect]
     Active Substance: DEFERASIROX
     Dosage: 500 MG, QD (1X500 MG)
     Route: 048
     Dates: start: 20131219
  6. DEXAMETASON//DEXAMETHASONE [Concomitant]
     Indication: PRODUCT USED FOR UNKNOWN INDICATION
     Dosage: 8 MG, QD
     Route: 065
     Dates: start: 20140102

REACTIONS (2)
  - Death [Fatal]
  - General physical health deterioration [Recovered/Resolved]

NARRATIVE: CASE EVENT DATE: 20131210
